FAERS Safety Report 5298472-6 (Version None)
Quarter: 2007Q2

REPORT INFORMATION
  Report Type: 
  Country: None (occurrence: None)
  Receive Date: 20070409
  Receipt Date: 20070328
  Transmission Date: 20071010
  Serious: Yes (Other)
  Sender: FDA-Public Use
  Company Number: S07-USA-01369-01

PATIENT
  Age: 30 Year
  Sex: Male

DRUGS (1)
  1. LEXAPRO [Suspect]

REACTIONS (2)
  - AGGRESSION [None]
  - PHYSICAL ASSAULT [None]
